FAERS Safety Report 6212898-5 (Version None)
Quarter: 2009Q2

REPORT INFORMATION
  Report Type: 
  Country: None (occurrence: None)
  Receive Date: 20090601
  Receipt Date: 20090521
  Transmission Date: 20091009
  Serious: Yes (Other)
  Sender: FDA-Public Use
  Company Number: 2009US001893

PATIENT
  Age: 60 Year
  Sex: Male

DRUGS (1)
  1. LEXISCAN [Suspect]
     Indication: SCAN MYOCARDIAL PERFUSION
     Dosage: IV NOS
     Route: 042
     Dates: start: 20090519, end: 20090519

REACTIONS (3)
  - FLUSHING [None]
  - HYPERHIDROSIS [None]
  - HYPOGLYCAEMIC UNCONSCIOUSNESS [None]
